FAERS Safety Report 15156297 (Version 2)
Quarter: 2018Q3

REPORT INFORMATION
  Report Type: Report from Study
  Country: US (occurrence: US)
  Receive Date: 20180717
  Receipt Date: 20180816
  Transmission Date: 20181010
  Serious: Yes (Death)
  Sender: FDA-Public Use
  Company Number: US-EXELIXIS-CABO-18014935

PATIENT
  Sex: Female

DRUGS (3)
  1. THYROGEN [Concomitant]
     Active Substance: THYROTROPIN ALFA
  2. CABOMETYX [Suspect]
     Active Substance: CABOZANTINIB S-MALATE
     Indication: GASTRIC CANCER
     Dosage: 60 MG, QD
     Route: 048
  3. CABOMETYX [Suspect]
     Active Substance: CABOZANTINIB S-MALATE
     Indication: THYROID CANCER

REACTIONS (2)
  - Off label use [Unknown]
  - Respiratory failure [Fatal]
